FAERS Safety Report 6276554-X (Version None)
Quarter: 2009Q3

REPORT INFORMATION
  Report Type: 
  Country: None (occurrence: None)
  Receive Date: 20090722
  Receipt Date: 20000403
  Transmission Date: 20100115
  Serious: No
  Sender: FDA-Public Use
  Company Number: 2000COU0483

PATIENT
  Age: 33 Year
  Sex: Female

DRUGS (1)
  1. COUMADIN [Suspect]
     Indication: CEREBROVASCULAR ACCIDENT
     Dosage: UNK UNK
     Route: 048
     Dates: start: 19880101

REACTIONS (3)
  - DRY SKIN [None]
  - PREGNANCY [None]
  - SKIN DISORDER [None]
